FAERS Safety Report 9377415 (Version 1)
Quarter: 2013Q3

REPORT INFORMATION
  Report Type: Spontaneous
  Country: BR (occurrence: BR)
  Receive Date: 20130701
  Receipt Date: 20130701
  Transmission Date: 20140515
  Serious: Yes (Other)
  Sender: FDA-Public Use
  Company Number: BR-PFIZER INC-2013135635

PATIENT
  Age: 76 Year
  Sex: Female
  Weight: 61 kg

DRUGS (1)
  1. LYRICA [Suspect]
     Dosage: 75 MG, UNK

REACTIONS (1)
  - Cerebrovascular accident [Unknown]
